FAERS Safety Report 5907002-4 (Version None)
Quarter: 2008Q4

REPORT INFORMATION
  Report Type: 
  Country: None (occurrence: None)
  Receive Date: 20081003
  Receipt Date: 20080919
  Transmission Date: 20090506
  Serious: Yes (Death, Hospitalization)
  Sender: FDA-Public Use
  Company Number: US-BAYER-200827370GPV

PATIENT
  Age: 60 Year
  Sex: Female

DRUGS (9)
  1. CAMPATH [Suspect]
     Indication: RENAL TRANSPLANT
     Route: 042
     Dates: start: 20040101, end: 20040101
  2. ACETAMINOPHEN [Concomitant]
     Indication: PREMEDICATION
  3. DIPHENHYDRAMINE HCL [Concomitant]
     Indication: PREMEDICATION
  4. METHYLPREDNISOLONE [Concomitant]
     Indication: PREMEDICATION
  5. VALCYTE [Concomitant]
     Indication: ANTIVIRAL PROPHYLAXIS
  6. MYCELEX [Concomitant]
     Indication: ANTIFUNGAL PROPHYLAXIS
  7. TRIMETHOPRIM + SULFAMETHOXAZOLE [Concomitant]
     Indication: ANTIFUNGAL PROPHYLAXIS
  8. PROGRAF [Concomitant]
     Indication: RENAL TRANSPLANT
  9. CELLCEPT [Concomitant]
     Indication: RENAL TRANSPLANT
     Dosage: TOTAL DAILY DOSE: 1000 MG
     Route: 048

REACTIONS (5)
  - CANDIDIASIS [None]
  - HEPATIC FUNCTION ABNORMAL [None]
  - HISTOPLASMOSIS DISSEMINATED [None]
  - PNEUMONIA [None]
  - RENAL FAILURE ACUTE [None]
